FAERS Safety Report 6914858-5 (Version None)
Quarter: 2010Q3

REPORT INFORMATION
  Report Type: 
  Country: None (occurrence: None)
  Receive Date: 20100804
  Receipt Date: 20100727
  Transmission Date: 20110219
  Serious: Yes (Life-Threatening)
  Sender: FDA-Public Use
  Company Number: 2010S1000079

PATIENT
  Age: 29 Day
  Sex: Female

DRUGS (17)
  1. INOMAX [Suspect]
     Indication: BRONCHOPULMONARY DYSPLASIA
     Dosage: 20 PPM; CONT; INH, 10 PPM; CONT; INH, 5 PPM; CONT; INH
     Route: 055
     Dates: start: 20100701, end: 20100704
  2. INOMAX [Suspect]
     Indication: PROPHYLAXIS
     Dosage: 20 PPM; CONT; INH, 10 PPM; CONT; INH, 5 PPM; CONT; INH
     Route: 055
     Dates: start: 20100701, end: 20100704
  3. INOMAX [Suspect]
     Indication: BRONCHOPULMONARY DYSPLASIA
     Dosage: 20 PPM; CONT; INH, 10 PPM; CONT; INH, 5 PPM; CONT; INH
     Route: 055
     Dates: start: 20100704, end: 20100711
  4. INOMAX [Suspect]
     Indication: PROPHYLAXIS
     Dosage: 20 PPM; CONT; INH, 10 PPM; CONT; INH, 5 PPM; CONT; INH
     Route: 055
     Dates: start: 20100704, end: 20100711
  5. INOMAX [Suspect]
     Indication: BRONCHOPULMONARY DYSPLASIA
     Dosage: 20 PPM; CONT; INH, 10 PPM; CONT; INH, 5 PPM; CONT; INH
     Route: 055
     Dates: start: 20100711, end: 20100712
  6. INOMAX [Suspect]
     Indication: PROPHYLAXIS
     Dosage: 20 PPM; CONT; INH, 10 PPM; CONT; INH, 5 PPM; CONT; INH
     Route: 055
     Dates: start: 20100711, end: 20100712
  7. INOMAX [Suspect]
     Indication: BRONCHOPULMONARY DYSPLASIA
     Dosage: 20 PPM; CONT; INH, 10 PPM; CONT; INH, 5 PPM; CONT; INH
     Route: 055
     Dates: start: 20100712, end: 20100712
  8. INOMAX [Suspect]
     Indication: PROPHYLAXIS
     Dosage: 20 PPM; CONT; INH, 10 PPM; CONT; INH, 5 PPM; CONT; INH
     Route: 055
     Dates: start: 20100712, end: 20100712
  9. INOMAX [Suspect]
     Indication: BRONCHOPULMONARY DYSPLASIA
     Dosage: 20 PPM; CONT; INH, 10 PPM; CONT; INH, 5 PPM; CONT; INH
     Route: 055
     Dates: start: 20100712, end: 20100712
  10. INOMAX [Suspect]
     Indication: PROPHYLAXIS
     Dosage: 20 PPM; CONT; INH, 10 PPM; CONT; INH, 5 PPM; CONT; INH
     Route: 055
     Dates: start: 20100712, end: 20100712
  11. INOMAX [Suspect]
     Indication: BRONCHOPULMONARY DYSPLASIA
     Dosage: 20 PPM; CONT; INH, 10 PPM; CONT; INH, 5 PPM; CONT; INH
     Route: 055
     Dates: start: 20100712, end: 20100712
  12. INOMAX [Suspect]
     Indication: PROPHYLAXIS
     Dosage: 20 PPM; CONT; INH, 10 PPM; CONT; INH, 5 PPM; CONT; INH
     Route: 055
     Dates: start: 20100712, end: 20100712
  13. INOMAX [Suspect]
     Indication: BRONCHOPULMONARY DYSPLASIA
     Dosage: 20 PPM; CONT; INH, 10 PPM; CONT; INH, 5 PPM; CONT; INH
     Route: 055
     Dates: start: 20100712, end: 20100725
  14. INOMAX [Suspect]
     Indication: PROPHYLAXIS
     Dosage: 20 PPM; CONT; INH, 10 PPM; CONT; INH, 5 PPM; CONT; INH
     Route: 055
     Dates: start: 20100712, end: 20100725
  15. LIPIDS [Concomitant]
  16. FENTANYL CITRATE [Concomitant]
  17. FUROSEMIDE [Concomitant]

REACTIONS (5)
  - BRADYCARDIA NEONATAL [None]
  - CEREBRAL HAEMORRHAGE [None]
  - NEONATAL HYPOXIA [None]
  - PERIVENTRICULAR LEUKOMALACIA [None]
  - PNEUMOTHORAX [None]
